FAERS Safety Report 12301251 (Version 2)
Quarter: 2016Q2

REPORT INFORMATION
  Report Type: Spontaneous
  Country: GB (occurrence: GB)
  Receive Date: 20160425
  Receipt Date: 20160427
  Transmission Date: 20160815
  Serious: Yes (Disabling, Other)
  Sender: FDA-Public Use
  Company Number: GB-PFIZER INC-2016223168

PATIENT
  Age: 66 Year
  Sex: Male
  Weight: 73.47 kg

DRUGS (1)
  1. DEPO-MEDRONE [Suspect]
     Active Substance: METHYLPREDNISOLONE
     Indication: ORTHOPAEDIC PROCEDURE
     Dosage: UNK
     Route: 008
     Dates: start: 20150907, end: 20150914

REACTIONS (5)
  - Burning sensation [Recovering/Resolving]
  - Pain [Recovering/Resolving]
  - Eye pain [Unknown]
  - Incorrect route of drug administration [Unknown]
  - Arachnoiditis [Recovering/Resolving]

NARRATIVE: CASE EVENT DATE: 20150907
